FAERS Safety Report 23072672 (Version 1)
Quarter: 2023Q4

REPORT INFORMATION
  Report Type: Spontaneous
  Country: US (occurrence: US)
  Receive Date: 20231017
  Receipt Date: 20231017
  Transmission Date: 20240110
  Serious: Yes (Other)
  Sender: FDA-Public Use
  Company Number: US-SANDOZ-NVSC2023US148992

PATIENT
  Age: 31 Year
  Sex: Female

DRUGS (47)
  1. ALBUTEROL [Suspect]
     Active Substance: ALBUTEROL
     Indication: Psoriatic arthropathy
     Dosage: UNK
     Route: 055
  2. ALBUTEROL SULFATE [Suspect]
     Active Substance: ALBUTEROL SULFATE
     Indication: Psoriatic arthropathy
     Route: 055
  3. ALPRAZOLAM [Suspect]
     Active Substance: ALPRAZOLAM
     Indication: Psoriatic arthropathy
     Dosage: UNK
     Route: 065
  4. BETAMETHASONE [Suspect]
     Active Substance: BETAMETHASONE
     Indication: Psoriatic arthropathy
     Dosage: UNK, (6 MG/CC)
     Route: 065
  5. BIOTIN [Suspect]
     Active Substance: BIOTIN
     Indication: Psoriatic arthropathy
     Dosage: UNK
     Route: 065
  6. CALCIPOTRIENE [Suspect]
     Active Substance: CALCIPOTRIENE
     Indication: Psoriatic arthropathy
     Dosage: UNK, (CALCIPOTRIENE-BETAMETHASONE)
     Route: 065
  7. CETIRIZINE [Suspect]
     Active Substance: CETIRIZINE HYDROCHLORIDE
     Indication: Psoriatic arthropathy
     Dosage: UNK, TABLET
     Route: 065
  8. CLOBETASOL PROPIONATE [Suspect]
     Active Substance: CLOBETASOL PROPIONATE
     Indication: Psoriatic arthropathy
     Dosage: UNK, (FOAM)
     Route: 065
  9. CLONAZEPAM [Suspect]
     Active Substance: CLONAZEPAM
     Indication: Psoriatic arthropathy
     Dosage: UNK
     Route: 065
  10. COSENTYX [Suspect]
     Active Substance: SECUKINUMAB
     Indication: Psoriatic arthropathy
     Dosage: 300 MG, 28D
     Route: 058
  11. COSENTYX [Suspect]
     Active Substance: SECUKINUMAB
     Indication: Ankylosing spondylitis
     Dosage: 300 MG, 14D
     Route: 058
     Dates: start: 201802
  12. DICLOFENAC [Suspect]
     Active Substance: DICLOFENAC
     Indication: Psoriatic arthropathy
     Dosage: UNK, (DICLOFENAC SODIUM SOPM AND TABLET)
     Route: 065
  13. ERGOCALCIFEROL [Suspect]
     Active Substance: ERGOCALCIFEROL
     Indication: Psoriatic arthropathy
     Dosage: UNK
     Route: 065
  14. ESTRADIOL [Suspect]
     Active Substance: ESTRADIOL
     Indication: Psoriatic arthropathy
     Dosage: UNK
     Route: 065
  15. FLUOCINOLONE [Suspect]
     Active Substance: FLUOCINOLONE
     Indication: Psoriatic arthropathy
     Dosage: UNK, (OIL)
     Route: 065
  16. FLUOXETINE [Suspect]
     Active Substance: FLUOXETINE HYDROCHLORIDE
     Indication: Psoriatic arthropathy
     Dosage: UNK
     Route: 065
  17. FLUTICASONE [Suspect]
     Active Substance: FLUTICASONE
     Indication: Psoriatic arthropathy
     Dosage: UNK
     Route: 065
  18. FOLIC ACID [Suspect]
     Active Substance: FOLIC ACID
     Indication: Psoriatic arthropathy
     Dosage: UNK
     Route: 065
  19. GABAPENTIN [Suspect]
     Active Substance: GABAPENTIN
     Indication: Psoriatic arthropathy
     Dosage: UNK
     Route: 065
  20. GINKGO [Suspect]
     Active Substance: GINKGO
     Indication: Psoriatic arthropathy
     Dosage: UNK
     Route: 065
  21. HALOBETASOL PROPIONATE [Suspect]
     Active Substance: HALOBETASOL PROPIONATE
     Indication: Psoriatic arthropathy
     Dosage: UNK
     Route: 065
  22. IBUPROFEN [Suspect]
     Active Substance: IBUPROFEN
     Indication: Psoriatic arthropathy
     Dosage: UNK
     Route: 065
  23. IMURAN [Suspect]
     Active Substance: AZATHIOPRINE
     Indication: Psoriatic arthropathy
     Dosage: UNK
     Route: 065
  24. IODINE [Suspect]
     Active Substance: IODINE
     Indication: Psoriatic arthropathy
     Dosage: UNK
     Route: 065
  25. KETOROLAC [Suspect]
     Active Substance: KETOROLAC TROMETHAMINE
     Indication: Psoriatic arthropathy
     Dosage: UNK, (KETOROLAC TROMETHAMINE)
     Route: 065
  26. LEFLUNOMIDE [Suspect]
     Active Substance: LEFLUNOMIDE
     Indication: Psoriatic arthropathy
     Dosage: UNK
     Route: 065
  27. LEVOCETIRIZINE [Suspect]
     Active Substance: LEVOCETIRIZINE
     Indication: Psoriatic arthropathy
     Dosage: UNK
     Route: 065
  28. LIDOCAINE [Suspect]
     Active Substance: LIDOCAINE
     Indication: Psoriatic arthropathy
     Dosage: UNK
     Route: 065
  29. LORATADINE [Suspect]
     Active Substance: LORATADINE
     Indication: Psoriatic arthropathy
     Dosage: UNK
     Route: 065
  30. MELATONIN [Suspect]
     Active Substance: MELATONIN
     Indication: Psoriatic arthropathy
     Dosage: UNK, (SR)
     Route: 065
  31. METHOTREXATE [Suspect]
     Active Substance: METHOTREXATE
     Indication: Psoriatic arthropathy
     Dosage: UNK
     Route: 065
  32. MINOCYCLINE [Suspect]
     Active Substance: MINOCYCLINE HYDROCHLORIDE
     Indication: Psoriatic arthropathy
     Dosage: UNK
     Route: 065
  33. MUPIROCIN [Suspect]
     Active Substance: MUPIROCIN
     Indication: Psoriatic arthropathy
     Dosage: UNK
     Route: 065
  34. NALTREXONE [Suspect]
     Active Substance: NALTREXONE
     Indication: Psoriatic arthropathy
     Dosage: UNK
     Route: 065
  35. NYSTATIN [Suspect]
     Active Substance: NYSTATIN
     Indication: Psoriatic arthropathy
     Dosage: UNK
     Route: 065
  36. OXYCODONE [Suspect]
     Active Substance: OXYCODONE
     Indication: Psoriatic arthropathy
     Dosage: UNK, (OXYCODONE-ACETAMINOPHEN)
     Route: 065
  37. PROMETHAZINE [Suspect]
     Active Substance: PROMETHAZINE HYDROCHLORIDE
     Indication: Psoriatic arthropathy
     Dosage: UNK, (PROMETHAZINE-DEXTROMETHORPHAN)
     Route: 065
  38. PSEUDOEPHEDRINE [Suspect]
     Active Substance: PSEUDOEPHEDRINE
     Indication: Psoriatic arthropathy
     Dosage: UNK
     Route: 065
  39. SULFASALAZINE [Suspect]
     Active Substance: SULFASALAZINE
     Indication: Psoriatic arthropathy
     Dosage: 1000 MG
     Route: 065
     Dates: start: 20180417
  40. TEMAZEPAM [Suspect]
     Active Substance: TEMAZEPAM
     Indication: Psoriatic arthropathy
     Dosage: UNK
     Route: 065
  41. TIZANIDINE [Suspect]
     Active Substance: TIZANIDINE
     Indication: Psoriatic arthropathy
     Dosage: UNK
     Route: 065
  42. TRIAMCINOLONE [Suspect]
     Active Substance: TRIAMCINOLONE
     Indication: Psoriatic arthropathy
     Dosage: UNK, (PASTE TRIAMCINOLONE ACETONIDE)
     Route: 065
  43. VALACYCLOVIR [Suspect]
     Active Substance: VALACYCLOVIR HYDROCHLORIDE
     Indication: Psoriatic arthropathy
     Dosage: UNK
     Route: 065
  44. VITAMIN A [Suspect]
     Active Substance: VITAMIN A
     Indication: Psoriatic arthropathy
     Dosage: UNK
     Route: 065
  45. VITAMIN B [Suspect]
     Active Substance: VITAMIN B
     Indication: Psoriatic arthropathy
     Dosage: UNK
     Route: 065
  46. ZINC [Suspect]
     Active Substance: ZINC
     Indication: Psoriatic arthropathy
     Dosage: UNK
     Route: 065
  47. ZOLPIDEM [Suspect]
     Active Substance: ZOLPIDEM TARTRATE
     Indication: Psoriatic arthropathy
     Dosage: UNK
     Route: 065

REACTIONS (18)
  - Immunodeficiency [Unknown]
  - Rectal haemorrhage [Unknown]
  - Cough [Recovered/Resolved]
  - Dyspnoea [Unknown]
  - Erythrodermic psoriasis [Unknown]
  - Wheezing [Unknown]
  - Rash [Unknown]
  - Alopecia [Recovering/Resolving]
  - Dactylitis [Unknown]
  - Spinal osteoarthritis [Unknown]
  - Enthesopathy [Unknown]
  - Gastrointestinal disorder [Unknown]
  - Abdominal discomfort [Unknown]
  - Stress [Unknown]
  - Drug ineffective [Unknown]
  - Product use in unapproved indication [Unknown]
  - Psoriasis [Unknown]
  - Sciatica [Unknown]

NARRATIVE: CASE EVENT DATE: 20170901
